FAERS Safety Report 5469121-9 (Version None)
Quarter: 2007Q3

REPORT INFORMATION
  Report Type: 
  Country: None (occurrence: None)
  Receive Date: 20070927
  Receipt Date: 20070919
  Transmission Date: 20080115
  Serious: Yes (Hospitalization)
  Sender: FDA-Public Use
  Company Number: PHBS2007IL15613

PATIENT
  Sex: Female

DRUGS (1)
  1. EXELON [Suspect]
     Indication: DEMENTIA
     Dosage: 3 MG/D
     Route: 048

REACTIONS (1)
  - PNEUMONIA [None]
